FAERS Safety Report 8518328-2 (Version None)
Quarter: 2012Q3

REPORT INFORMATION
  Report Type: 
  Country: None (occurrence: None)
  Receive Date: 20120718
  Receipt Date: 20120127
  Transmission Date: 20120928
  Serious: Yes (Other)
  Sender: FDA-Public Use
  Company Number: US-BRISTOL-MYERS SQUIBB COMPANY-16371940

PATIENT
  Age: 82 Year
  Sex: Female

DRUGS (6)
  1. COUMADIN [Suspect]
     Indication: ATRIAL FIBRILLATION
     Dosage: EXCEPT 1.5MG ONE DAY A WEEK
  2. VITAMIN B-12 [Concomitant]
     Dosage: TAB
  3. METOPROLOL SUCCINATE [Concomitant]
  4. LIPITOR [Concomitant]
  5. CALCIUM + VITAMIN D [Concomitant]
  6. LISINOPRIL [Concomitant]

REACTIONS (1)
  - INTERNATIONAL NORMALISED RATIO INCREASED [None]
